FAERS Safety Report 6127900-9 (Version None)
Quarter: 2009Q1

REPORT INFORMATION
  Report Type: 
  Country: None (occurrence: None)
  Receive Date: 20090323
  Receipt Date: 20090316
  Transmission Date: 20090719
  Serious: Yes (Hospitalization)
  Sender: FDA-Public Use
  Company Number: DE-ABBOTT-09P-062-0562819-00

PATIENT
  Sex: Female

DRUGS (3)
  1. HUMIRA [Suspect]
     Indication: CROHN'S DISEASE
     Dates: start: 20071221
  2. HUMIRA [Suspect]
     Dates: start: 20090313
  3. ANTIBIOTICS [Concomitant]
     Indication: DRUG USE FOR UNKNOWN INDICATION

REACTIONS (5)
  - ABSCESS [None]
  - APPENDICECTOMY [None]
  - INCISION SITE ABSCESS [None]
  - INTESTINAL STENOSIS [None]
  - SUTURE INSERTION [None]
